FAERS Safety Report 9397589 (Version 2)
Quarter: 2013Q3

REPORT INFORMATION
  Report Type: Report from Study
  Country: DE (occurrence: DE)
  Receive Date: 20130712
  Receipt Date: 20130821
  Transmission Date: 20140515
  Serious: Yes (Hospitalization)
  Sender: FDA-Public Use
  Company Number: DE-CELGENEUS-062-21660-13070462

PATIENT
  Age: 62 Year
  Sex: 0
  Weight: 53 kg

DRUGS (1)
  1. ABRAXANE [Suspect]
     Indication: BREAST CANCER METASTATIC
     Route: 041
     Dates: start: 20130524, end: 20130621

REACTIONS (2)
  - Circulatory collapse [Recovered/Resolved]
  - Nausea [Recovered/Resolved]
